FAERS Safety Report 8203237 (Version 9)
Quarter: 2014Q2

REPORT INFORMATION
  Report Type: Report from Study
  Country: JP (occurrence: JP)
  Receive Date: 20111027
  Receipt Date: 20140614
  Transmission Date: 20141212
  Serious: Yes (Hospitalization, Disabling)
  Sender: FDA-Public Use
  Company Number: JP-AMGEN-JPNSP2011055006

PATIENT
  Age: 61 Year
  Sex: Female
  Weight: 47 kg

DRUGS (7)
  1. ROMIPLOSTIM - KHK [Suspect]
     Indication: IMMUNE THROMBOCYTOPENIC PURPURA
     Dosage: 1 MG/KG, QD
     Route: 058
     Dates: start: 20110816
  2. ANABOLIC STEROIDS [Concomitant]
     Dosage: UNK MG, UNK
     Route: 065
  3. PREDONINE [Concomitant]
     Indication: IMMUNE THROMBOCYTOPENIC PURPURA
     Dosage: 10 MG, UNK
     Route: 048
     Dates: start: 20110815
  4. REVOLADE [Concomitant]
     Indication: IMMUNE THROMBOCYTOPENIC PURPURA
     Dosage: 50 MG, UNK
     Route: 048
     Dates: start: 20111101, end: 20111205
  5. ALEVIATIN [Concomitant]
     Indication: EPILEPSY
     Dosage: UNK
     Route: 065
  6. BONALON [Concomitant]
     Indication: OSTEOPOROSIS
     Dosage: 5 MG, UNK
     Route: 065
  7. GASTER [Concomitant]
     Indication: GASTRITIS
     Dosage: UNK

REACTIONS (7)
  - Renal disorder [Recovered/Resolved]
  - Platelet count decreased [Not Recovered/Not Resolved]
  - Mouth haemorrhage [Recovering/Resolving]
  - Epistaxis [Recovering/Resolving]
  - Anaemia [Recovering/Resolving]
  - Liver disorder [Recovered/Resolved]
  - Renal disorder [Not Recovered/Not Resolved]
